FAERS Safety Report 6784784-3 (Version None)
Quarter: 2010Q2

REPORT INFORMATION
  Report Type: 
  Country: None (occurrence: None)
  Receive Date: 20100622
  Receipt Date: 20100610
  Transmission Date: 20101027
  Serious: Yes (Other)
  Sender: FDA-Public Use
  Company Number: PHHY2010FR38775

PATIENT
  Age: 63 Year
  Sex: Female

DRUGS (3)
  1. RASILEZ HCT [Suspect]
     Dosage: 150 /12.5 MG
  2. EXFORGE [Concomitant]
     Dosage: 160/10 MG
  3. TEMERIT [Concomitant]
     Dosage: UNK

REACTIONS (3)
  - EYELID OEDEMA [None]
  - FACE OEDEMA [None]
  - PRURITUS GENERALISED [None]
